FAERS Safety Report 6438261-X (Version None)
Quarter: 2009Q4

REPORT INFORMATION
  Report Type: 
  Country: None (occurrence: None)
  Receive Date: 20091112
  Receipt Date: 20091030
  Transmission Date: 20100525
  Serious: Yes (Hospitalization)
  Sender: FDA-Public Use
  Company Number: PHHY2009FR47559

PATIENT
  Sex: Male

DRUGS (5)
  1. ZOMETA [Suspect]
     Indication: PROSTATE CANCER
  2. SOLU-MEDROL [Concomitant]
  3. ZOPHREN [Concomitant]
  4. TAXOTERE [Concomitant]
  5. PRIMPERAN [Concomitant]

REACTIONS (3)
  - ABDOMINAL PAIN [None]
  - ASPHYXIA [None]
  - FEELING HOT [None]
